FAERS Safety Report 25240971 (Version 1)
Quarter: 2025Q2

REPORT INFORMATION
  Report Type: Spontaneous
  Country: US (occurrence: None)
  Receive Date: 20250425
  Receipt Date: 20250425
  Transmission Date: 20250716
  Serious: Yes (Other)
  Sender: FDA-CTU
  Company Number: None

PATIENT
  Age: 68 Year
  Sex: Female
  Weight: 63.5 kg

DRUGS (14)
  1. GAMUNEX-C [Suspect]
     Active Substance: HUMAN IMMUNOGLOBULIN G
     Indication: Neuropathy peripheral
     Route: 042
  2. GAMUNEX-C [Suspect]
     Active Substance: HUMAN IMMUNOGLOBULIN G
     Indication: Inflammation
  3. ACETAZOLAMIDE [Concomitant]
     Active Substance: ACETAZOLAMIDE
  4. BIOTIN [Concomitant]
     Active Substance: BIOTIN
  5. CETIRIZINE [Concomitant]
     Active Substance: CETIRIZINE HYDROCHLORIDE
  6. ESTRADIOL [Concomitant]
     Active Substance: ESTRADIOL
  7. Ergocalciferol (Vit D2) [Concomitant]
  8. LORAZEPAM [Concomitant]
     Active Substance: LORAZEPAM
  9. MAGNESIUM OXIDE [Concomitant]
     Active Substance: MAGNESIUM OXIDE
  10. VITAMINS [Concomitant]
     Active Substance: VITAMINS
  11. MEMANTINE [Concomitant]
     Active Substance: MEMANTINE
  12. QULIPTA [Concomitant]
     Active Substance: ATOGEPANT
  13. NURTEC ODT [Concomitant]
     Active Substance: RIMEGEPANT SULFATE
  14. MELOXICAM [Concomitant]
     Active Substance: MELOXICAM

REACTIONS (8)
  - Infusion site urticaria [None]
  - Infusion site pruritus [None]
  - Infusion site pain [None]
  - Infusion site pain [None]
  - Urticaria [None]
  - Pruritus [None]
  - Skin irritation [None]
  - Hypersensitivity [None]

NARRATIVE: CASE EVENT DATE: 20250424
